FAERS Safety Report 25673624 (Version 1)
Quarter: 2025Q3

REPORT INFORMATION
  Report Type: Spontaneous
  Country: US (occurrence: US)
  Receive Date: 20250813
  Receipt Date: 20250813
  Transmission Date: 20251020
  Serious: Yes (Other)
  Sender: UNILEVER
  Company Number: US-Unilever-2182385

PATIENT
  Sex: Male

DRUGS (1)
  1. DEGREE (ALUMINUM SESQUICHLOROHYDRATE) [Suspect]
     Active Substance: ALUMINUM SESQUICHLOROHYDRATE
     Dates: start: 20250511

REACTIONS (3)
  - Furuncle [Not Recovered/Not Resolved]
  - Furuncle [Unknown]
  - Abscess rupture [Not Recovered/Not Resolved]

NARRATIVE: CASE EVENT DATE: 20250511
